FAERS Safety Report 9029061 (Version 2)
Quarter: 2013Q4

REPORT INFORMATION
  Report Type: Spontaneous
  Country: US (occurrence: US)
  Receive Date: 20130122
  Receipt Date: 20131001
  Transmission Date: 20140711
  Serious: Yes (Other)
  Sender: FDA-Public Use
  Company Number: US-ROCHE-1181109

PATIENT
  Sex: Female
  Weight: 79.45 kg

DRUGS (1)
  1. ACCUTANE [Suspect]
     Indication: ACNE
     Route: 065
     Dates: start: 2000, end: 2000

REACTIONS (6)
  - Crohn^s disease [Unknown]
  - Anxiety [Unknown]
  - Emotional distress [Unknown]
  - Spondylitis [Unknown]
  - Inflammatory bowel disease [Unknown]
  - Depression [Unknown]
